FAERS Safety Report 13864990 (Version 2)
Quarter: 2017Q3

REPORT INFORMATION
  Report Type: Spontaneous
  Country: BR (occurrence: BR)
  Receive Date: 20170814
  Receipt Date: 20170823
  Transmission Date: 20171127
  Serious: Yes (Disabling, Other)
  Sender: FDA-Public Use
  Company Number: BR-ABBVIE-17P-020-2070623-00

PATIENT
  Sex: Female

DRUGS (8)
  1. ACETYLSALICYLIC ACID/ALUMINIUMGLYCINATE/MAGNESIUM CARBONATE [Concomitant]
     Indication: PRODUCT USED FOR UNKNOWN INDICATION
  2. DEPAKENE [Suspect]
     Active Substance: VALPROIC ACID
     Indication: PRODUCT USED FOR UNKNOWN INDICATION
     Route: 065
     Dates: start: 201612
  3. DEPAKENE [Suspect]
     Active Substance: VALPROIC ACID
     Indication: PRODUCT USED FOR UNKNOWN INDICATION
     Route: 065
     Dates: start: 2015, end: 2015
  4. XARELTO [Concomitant]
     Active Substance: RIVAROXABAN
     Indication: ANTICOAGULANT THERAPY
     Dates: start: 2016
  5. ARTROLIVE [Concomitant]
     Active Substance: CHONDROITIN SULFATE (BOVINE)\GLUCOSAMINE SULFATE
     Indication: RHEUMATOID ARTHRITIS
     Dates: start: 2016
  6. DEPAKENE [Suspect]
     Active Substance: VALPROIC ACID
     Dosage: TABLET MACERATED AND ADMINSITRATED VIA CATHETER
     Route: 050
     Dates: start: 2016, end: 2016
  7. SOMALGIN CARDIO [Concomitant]
     Active Substance: ASPIRIN\DIHYDROXYALUMINUM AMINOACETATE ANHYDROUS\MAGNESIUM CARBONATE
     Indication: INFARCTION
  8. TECNOMET [Suspect]
     Active Substance: METHOTREXATE
     Indication: PROPHYLAXIS
     Dosage: ON SATURDAYS (IN THE MORNING MORNING / AT THE AFTERNOON)
     Route: 065
     Dates: start: 2005

REACTIONS (10)
  - Gastrointestinal necrosis [Unknown]
  - Drug administration error [Unknown]
  - Bedridden [Not Recovered/Not Resolved]
  - Thrombosis [Unknown]
  - Eschar [Not Recovered/Not Resolved]
  - Blood albumin decreased [Not Recovered/Not Resolved]
  - Seizure [Recovered/Resolved]
  - Haemorrhage [Unknown]
  - Intestinal obstruction [Unknown]
  - Feeding disorder [Not Recovered/Not Resolved]

NARRATIVE: CASE EVENT DATE: 2016
